FAERS Safety Report 20028102 (Version 1)
Quarter: 2021Q4

REPORT INFORMATION
  Report Type: Spontaneous
  Country: US (occurrence: US)
  Receive Date: 20211103
  Receipt Date: 20211103
  Transmission Date: 20220303
  Serious: No
  Sender: FDA-Public Use
  Company Number: US-SA-SAC20211027001184

PATIENT
  Age: 46 Year
  Sex: Female

DRUGS (21)
  1. DUPIXENT [Suspect]
     Active Substance: DUPILUMAB
     Indication: Asthma
     Dosage: 600 MG, 1X
     Route: 058
     Dates: start: 20210823, end: 20210823
  2. NUCALA [Concomitant]
     Active Substance: MEPOLIZUMAB
  3. FASENRA [Concomitant]
     Active Substance: BENRALIZUMAB
  4. ALBUTEROL [Concomitant]
     Active Substance: ALBUTEROL
  5. BREO ELLIPTA [Concomitant]
     Active Substance: FLUTICASONE FUROATE\VILANTEROL TRIFENATATE
  6. CLONAZEPAM [Concomitant]
     Active Substance: CLONAZEPAM
  7. DEPO-PROVERA [Concomitant]
     Active Substance: MEDROXYPROGESTERONE ACETATE
  8. DULOXETINE [Concomitant]
     Active Substance: DULOXETINE
  9. FLUTICASONE [Concomitant]
     Active Substance: FLUTICASONE
  10. GABAPENTIN [Concomitant]
     Active Substance: GABAPENTIN
  11. INCRUSE ELLIPTA [Concomitant]
     Active Substance: UMECLIDINIUM BROMIDE
  12. HYDROCHLOROTHIAZIDE\LISINOPRIL [Concomitant]
     Active Substance: HYDROCHLOROTHIAZIDE\LISINOPRIL
  13. LISINOPRIL [Concomitant]
     Active Substance: LISINOPRIL
  14. MELOXICAM [Concomitant]
     Active Substance: MELOXICAM
  15. MONTELUKAST [Concomitant]
     Active Substance: MONTELUKAST SODIUM
  16. ACETAMINOPHEN [Concomitant]
     Active Substance: ACETAMINOPHEN
  17. ARIPIPRAZOLE [Concomitant]
     Active Substance: ARIPIPRAZOLE
  18. CYCLOBENZAPRINE [Concomitant]
     Active Substance: CYCLOBENZAPRINE
  19. EPINEPHRINE [Concomitant]
     Active Substance: EPINEPHRINE
  20. PREDNISONE [Concomitant]
     Active Substance: PREDNISONE
  21. TRAZODONE [Concomitant]
     Active Substance: TRAZODONE HYDROCHLORIDE

REACTIONS (3)
  - Pruritus [Unknown]
  - Urticaria [Unknown]
  - Pain [Unknown]

NARRATIVE: CASE EVENT DATE: 20210901
